FAERS Safety Report 16207677 (Version 1)
Quarter: 2019Q2

REPORT INFORMATION
  Report Type: Spontaneous
  Country: US (occurrence: US)
  Receive Date: 20190315
  Receipt Date: 20190315
  Transmission Date: 20190711
  Serious: No
  Sender: FDA-Public Use
  Company Number: None

PATIENT
  Age: 92 Year
  Sex: Male

DRUGS (1)
  1. IMATINIB  400MG TAB (X30) [Suspect]
     Active Substance: IMATINIB
     Route: 048
     Dates: start: 201808

REACTIONS (3)
  - Vision blurred [None]
  - Xerophthalmia [None]
  - Conjunctivitis [None]

NARRATIVE: CASE EVENT DATE: 20190315
